FAERS Safety Report 14568823 (Version 2)
Quarter: 2018Q1

REPORT INFORMATION
  Report Type: Report from Study
  Country: PA (occurrence: PA)
  Receive Date: 20180223
  Receipt Date: 20180226
  Transmission Date: 20180509
  Serious: Yes (Death, Life-Threatening)
  Sender: FDA-Public Use
  Company Number: PHHY2018PA030837

PATIENT
  Age: 15 Year
  Sex: Female
  Weight: 116 kg

DRUGS (1)
  1. EXJADE [Suspect]
     Active Substance: DEFERASIROX
     Indication: SICKLE CELL ANAEMIA
     Dosage: UNK
     Route: 065
     Dates: end: 201612

REACTIONS (8)
  - Musculoskeletal stiffness [Unknown]
  - Headache [Unknown]
  - Respiratory arrest [Fatal]
  - Dyskinesia [Unknown]
  - Vomiting [Unknown]
  - Coma [Recovered/Resolved]
  - Post procedural complication [Fatal]
  - Haemorrhagic stroke [Unknown]

NARRATIVE: CASE EVENT DATE: 20161201
